FAERS Safety Report 8059324-1 (Version None)
Quarter: 2012Q1

REPORT INFORMATION
  Report Type: 
  Country: None (occurrence: None)
  Receive Date: 20120120
  Receipt Date: 20120113
  Transmission Date: 20120608
  Serious: Yes (Life-Threatening)
  Sender: FDA-Public Use
  Company Number: FR-CELGENEUS-056-C5013-11111401

PATIENT
  Sex: Male
  Weight: 76.2 kg

DRUGS (9)
  1. POLYETHYLENE GLYCOL [Concomitant]
     Route: 048
     Dates: start: 20090217
  2. DEXAMETHASONE TAB [Suspect]
     Route: 065
     Dates: start: 20111014, end: 20111102
  3. LANSOYL [Concomitant]
     Route: 048
     Dates: start: 20110915
  4. DOMPERIDONE [Concomitant]
     Route: 048
     Dates: start: 20090217
  5. LENALIDOMIDE [Suspect]
     Indication: MULTIPLE MYELOMA
     Dosage: 25 MILLIGRAM
     Route: 048
     Dates: start: 20090120
  6. DEXAMETHASONE TAB [Suspect]
     Indication: MULTIPLE MYELOMA
     Route: 065
     Dates: start: 20090120
  7. LENALIDOMIDE [Suspect]
     Dosage: 15 MILLIGRAM
     Route: 048
     Dates: start: 20111014, end: 20111020
  8. ASPEGIC 1000 [Concomitant]
     Dosage: 100 MILLIGRAM
     Route: 048
  9. OMEPRAZOLE [Concomitant]
     Dosage: 20 MILLIGRAM
     Route: 048

REACTIONS (1)
  - ACUTE MYELOID LEUKAEMIA [None]
